FAERS Safety Report 25088851 (Version 1)
Quarter: 2025Q1

REPORT INFORMATION
  Report Type: Spontaneous
  Country: US (occurrence: None)
  Receive Date: 20250318
  Receipt Date: 20250318
  Transmission Date: 20250409
  Serious: Yes (Other)
  Sender: ADIENNE PHARMA & BIOTECH
  Company Number: US-ADIENNEP-2025AD000179

PATIENT
  Sex: Male

DRUGS (7)
  1. THIOTEPA [Suspect]
     Active Substance: THIOTEPA
     Indication: Allogenic stem cell transplantation
  2. BUSULFAN [Suspect]
     Active Substance: BUSULFAN
     Indication: Allogenic stem cell transplantation
  3. FLUDARABINE [Suspect]
     Active Substance: FLUDARABINE PHOSPHATE
     Indication: Allogenic stem cell transplantation
  4. CLADRIBINE [Suspect]
     Active Substance: CLADRIBINE
     Indication: Allogenic stem cell transplantation
  5. VENETOCLAX [Suspect]
     Active Substance: VENETOCLAX
     Indication: Allogenic stem cell transplantation
  6. CYCLOPHOSPHAMIDE [Suspect]
     Active Substance: CYCLOPHOSPHAMIDE
  7. LUVELTAMAB TAZEVIBULIN [Suspect]
     Active Substance: LUVELTAMAB TAZEVIBULIN

REACTIONS (1)
  - Cytomegalovirus viraemia [Unknown]
